FAERS Safety Report 10354680 (Version 1)
Quarter: 2014Q3

REPORT INFORMATION
  Report Type: Spontaneous
  Country: AU (occurrence: AU)
  Receive Date: 20140731
  Receipt Date: 20140731
  Transmission Date: 20150326
  Serious: Yes (Other)
  Sender: FDA-Public Use
  Company Number: PHHY2014AU091522

PATIENT
  Age: 40 Year
  Sex: Male

DRUGS (4)
  1. ABACAVIR [Concomitant]
     Active Substance: ABACAVIR
     Indication: HIV INFECTION
     Dosage: 300 MG, BID
  2. FLUTICASONE [Suspect]
     Active Substance: FLUTICASONE\FLUTICASONE PROPIONATE
     Indication: ASTHMA
     Dosage: 250 MG, BID
     Route: 055
  3. STAVUDINE. [Concomitant]
     Active Substance: STAVUDINE
     Indication: HIV INFECTION
     Dosage: 40 MG, BID
  4. LOPINAVIR + RITONAVIR [Interacting]
     Active Substance: LOPINAVIR\RITONAVIR
     Indication: HIV INFECTION
     Dosage: 1 DF, BID

REACTIONS (14)
  - Arthropathy [Unknown]
  - Adrenal insufficiency [Unknown]
  - Drug interaction [Unknown]
  - Joint effusion [Unknown]
  - Hypokinesia [Unknown]
  - Adrenal suppression [Unknown]
  - Oedema [Unknown]
  - Blood cortisol decreased [Unknown]
  - Cushing^s syndrome [Unknown]
  - Osteonecrosis [Unknown]
  - Joint swelling [Unknown]
  - Osteopenia [Unknown]
  - Muscle atrophy [Unknown]
  - Arthralgia [Unknown]
